FAERS Safety Report 19385905 (Version 1)
Quarter: 2021Q2

REPORT INFORMATION
  Report Type: Spontaneous
  Country: US (occurrence: US)
  Receive Date: 20210605
  Receipt Date: 20210605
  Transmission Date: 20210717
  Serious: Yes (Hospitalization, Disabling)
  Sender: FDA-Public Use
  Company Number: None

PATIENT
  Age: 33 Year
  Sex: Female
  Weight: 53.1 kg

DRUGS (16)
  1. SEROQUEL [Concomitant]
     Active Substance: QUETIAPINE FUMARATE
  2. TURMERIC [Concomitant]
     Active Substance: HERBALS\TURMERIC
  3. GREEN KRATOM [Suspect]
     Active Substance: HERBALS\MITRAGYNINE
     Indication: ANXIETY
     Dosage: ?          QUANTITY:2 DF DOSAGE FORM;?
     Route: 048
     Dates: start: 20190601, end: 20190801
  4. PROPRANOLOL [Concomitant]
     Active Substance: PROPRANOLOL HYDROCHLORIDE
  5. OMEPRAZOLE. [Concomitant]
     Active Substance: OMEPRAZOLE
  6. WELLBUTRIN [Concomitant]
     Active Substance: BUPROPION HYDROCHLORIDE
  7. FISH OIL [Concomitant]
     Active Substance: FISH OIL
  8. MULTIVITAMINS [Concomitant]
     Active Substance: VITAMINS
  9. IMITREX [Concomitant]
     Active Substance: SUMATRIPTAN SUCCINATE
  10. PROMETHAZINE [Concomitant]
     Active Substance: PROMETHAZINE HYDROCHLORIDE
  11. IBUPROFEN. [Concomitant]
     Active Substance: IBUPROFEN
  12. GREEN KRATOM [Suspect]
     Active Substance: HERBALS\MITRAGYNINE
     Indication: PAIN
     Dosage: ?          QUANTITY:2 DF DOSAGE FORM;?
     Route: 048
     Dates: start: 20190601, end: 20190801
  13. MELATONIN [Concomitant]
     Active Substance: MELATONIN
  14. HYDROXYZINE [Concomitant]
     Active Substance: HYDROXYZINE HYDROCHLORIDE
  15. XANAX [Concomitant]
     Active Substance: ALPRAZOLAM
  16. PROBIOTIC [Concomitant]
     Active Substance: PROBIOTICS NOS

REACTIONS (5)
  - Dizziness [None]
  - Tremor [None]
  - Panic attack [None]
  - Disorientation [None]
  - Tachycardia [None]

NARRATIVE: CASE EVENT DATE: 20190901
